FAERS Safety Report 9443608 (Version 1)
Quarter: 2013Q3

REPORT INFORMATION
  Report Type: Spontaneous
  Country: US (occurrence: US)
  Receive Date: 20130806
  Receipt Date: 20130806
  Transmission Date: 20140515
  Serious: Yes (Other)
  Sender: FDA-Public Use
  Company Number: US-SHIRE-ALL1-2013-05201

PATIENT
  Age: 5 Year
  Sex: Male

DRUGS (2)
  1. INTUNIV [Suspect]
     Indication: ATTENTION DEFICIT/HYPERACTIVITY DISORDER
     Dosage: 1.5 MG, 1X/DAY:QD
     Route: 048
  2. INTUNIV [Suspect]
     Indication: AUTISM

REACTIONS (3)
  - Lichenoid keratosis [Recovered/Resolved with Sequelae]
  - Drug prescribing error [Recovered/Resolved]
  - Off label use [Recovered/Resolved]
